FAERS Safety Report 16748505 (Version 1)
Quarter: 2019Q3

REPORT INFORMATION
  Report Type: Spontaneous
  Country: SE (occurrence: SE)
  Receive Date: 20190828
  Receipt Date: 20190828
  Transmission Date: 20191005
  Serious: Yes (Hospitalization)
  Sender: FDA-Public Use
  Company Number: SE-ALK-ABELLO A/S-2013AA000793

PATIENT

DRUGS (1)
  1. GRAZAX [Suspect]
     Active Substance: PHLEUM PRATENSE POLLEN
     Indication: PRODUCT USED FOR UNKNOWN INDICATION
     Dosage: 75000 SQ-T, QD
     Route: 060
     Dates: start: 2011, end: 20130412

REACTIONS (5)
  - Mycotic allergy [Unknown]
  - Interstitial lung disease [Unknown]
  - Pulmonary arterial hypertension [Unknown]
  - Lymphadenopathy [Unknown]
  - Dyspnoea [Unknown]

NARRATIVE: CASE EVENT DATE: 2013
